FAERS Safety Report 10989592 (Version 1)
Quarter: 2015Q2

REPORT INFORMATION
  Report Type: Report from Study
  Country: BR (occurrence: BR)
  Receive Date: 20150406
  Receipt Date: 20150406
  Transmission Date: 20150821
  Serious: Yes (Hospitalization)
  Sender: FDA-Public Use
  Company Number: BR-BIOGENIDEC-2015BI041269

PATIENT
  Age: 56 Year
  Sex: Female

DRUGS (3)
  1. AVONEX [Suspect]
     Active Substance: INTERFERON BETA-1A
     Indication: MULTIPLE SCLEROSIS
     Route: 030
     Dates: start: 2011
  2. AVONEX [Suspect]
     Active Substance: INTERFERON BETA-1A
     Indication: MULTIPLE SCLEROSIS
     Route: 030
     Dates: start: 20120301
  3. AVONEX [Suspect]
     Active Substance: INTERFERON BETA-1A
     Indication: MULTIPLE SCLEROSIS
     Route: 030
     Dates: start: 20120301

REACTIONS (4)
  - Muscular weakness [Not Recovered/Not Resolved]
  - Acute myocardial infarction [Unknown]
  - Blood pressure increased [Not Recovered/Not Resolved]
  - Limb injury [Unknown]

NARRATIVE: CASE EVENT DATE: 201410
